FAERS Safety Report 12897043 (Version 2)
Quarter: 2017Q1

REPORT INFORMATION
  Report Type: Spontaneous
  Country: JP (occurrence: JP)
  Receive Date: 20161031
  Receipt Date: 20170118
  Transmission Date: 20170428
  Serious: Yes (Death, Life-Threatening, Hospitalization, Disabling, Other)
  Sender: FDA-Public Use
  Company Number: JP-PFIZER INC-2016325101

PATIENT
  Age: 77 Year
  Sex: Male
  Weight: 57.4 kg

DRUGS (1)
  1. XALKORI [Suspect]
     Active Substance: CRIZOTINIB
     Indication: LUNG NEOPLASM MALIGNANT
     Dosage: 250 MG, 2X/DAY
     Route: 048
     Dates: start: 20160525, end: 20160606

REACTIONS (7)
  - Photophobia [Unknown]
  - Tricuspid valve incompetence [Not Recovered/Not Resolved]
  - Haematochezia [Recovering/Resolving]
  - Interstitial lung disease [Fatal]
  - Bronchopulmonary aspergillosis [Fatal]
  - Hepatic function abnormal [Not Recovered/Not Resolved]
  - Depression [Unknown]

NARRATIVE: CASE EVENT DATE: 20160530
